FAERS Safety Report 10465070 (Version 3)
Quarter: 2014Q3

REPORT INFORMATION
  Report Type: Spontaneous
  Country: JP (occurrence: JP)
  Receive Date: 20140919
  Receipt Date: 20140930
  Transmission Date: 20150326
  Serious: Yes (Hospitalization)
  Sender: FDA-Public Use
  Company Number: JP-PFIZER INC-2014249135

PATIENT
  Age: 73 Year
  Sex: Female

DRUGS (11)
  1. VIVIANT [Suspect]
     Active Substance: BAZEDOXIFENE
     Dosage: UNK (20MG), ONCE A DAY
     Route: 048
  2. BAYASPIRIN [Concomitant]
     Active Substance: ASPIRIN
     Route: 048
  3. ALFACALCIDOL [Concomitant]
     Active Substance: ALFACALCIDOL
     Dosage: 0.5 UG, UNK
     Route: 048
  4. LIMAPROST ALFADEX [Concomitant]
     Active Substance: LIMAPROST
     Dosage: UNK (5UG), THRICE A DAY
     Route: 048
  5. HERBAL NOS [Concomitant]
     Active Substance: HERBALS
     Dosage: UNK, TWICE A DAY
     Route: 048
  6. FRANDOL [Concomitant]
     Active Substance: ISOSORBIDE DINITRATE
     Dosage: UNK (40MG), ONCE A DAY
     Route: 062
  7. LANSOPRAZOLE OD [Concomitant]
     Active Substance: LANSOPRAZOLE
     Dosage: 15 MG, UNK
     Route: 048
  8. PRAVASTATIN SODIUM. [Concomitant]
     Active Substance: PRAVASTATIN SODIUM
     Dosage: 5 MG, UNK
     Route: 048
  9. HERBESSER [Concomitant]
     Active Substance: DILTIAZEM HYDROCHLORIDE
     Dosage: UNK (100MG), TWICE A DAY
     Route: 048
  10. NEUROTROPIN [Concomitant]
     Active Substance: NEUROTROPIN
     Route: 048
  11. CELECOX [Concomitant]
     Active Substance: CELECOXIB
     Dosage: UNK (100MG), TWICE A DAY
     Route: 048

REACTIONS (4)
  - Disease progression [Unknown]
  - Petechiae [Recovered/Resolved]
  - Back pain [Unknown]
  - Spinal column stenosis [Unknown]

NARRATIVE: CASE EVENT DATE: 20140905
